FAERS Safety Report 8499300-8 (Version None)
Quarter: 2012Q3

REPORT INFORMATION
  Report Type: 
  Country: None (occurrence: None)
  Receive Date: 20120710
  Receipt Date: 20120705
  Transmission Date: 20120928
  Serious: Yes (Life-Threatening, Hospitalization)
  Sender: FDA-Public Use
  Company Number: CH-GENZYME-CLOF-1002177

PATIENT
  Sex: Female
  Weight: 49 kg

DRUGS (3)
  1. CLOFARABINE [Suspect]
     Indication: ACUTE MYELOID LEUKAEMIA
     Dosage: 16 MG, UNK (10MG/M2)
     Route: 042
     Dates: start: 20120228, end: 20120303
  2. MITOXANTRONE [Suspect]
     Indication: ACUTE MYELOID LEUKAEMIA
     Dosage: 14.5 MG, QD (10 MG/M2, DAY 1-5)
     Route: 042
     Dates: start: 20120430, end: 20120504
  3. ETOPOSIDE [Suspect]
     Indication: ACUTE MYELOID LEUKAEMIA
     Dosage: 14.5 MG, QD (100MG/M2, DAY 1-5)
     Route: 042
     Dates: start: 20120430, end: 20120504

REACTIONS (2)
  - PERICARDIAL EFFUSION [None]
  - CARDIAC TAMPONADE [None]
